FAERS Safety Report 25195990 (Version 1)
Quarter: 2025Q2

REPORT INFORMATION
  Report Type: Spontaneous
  Country: JP (occurrence: JP)
  Receive Date: 20250415
  Receipt Date: 20250415
  Transmission Date: 20250717
  Serious: Yes (Hospitalization)
  Sender: Steriscience PTE
  Company Number: None

PATIENT
  Age: 81 Year
  Sex: Male

DRUGS (2)
  1. MEROPENEM [Suspect]
     Active Substance: MEROPENEM
     Indication: Cholangitis
     Route: 042
  2. CEFMETAZOLE [Suspect]
     Active Substance: CEFMETAZOLE
     Indication: Escherichia infection
     Dosage: 1 GRAM, Q8H
     Route: 042

REACTIONS (3)
  - Device related infection [None]
  - Haematological infection [None]
  - Fungaemia [None]
